FAERS Safety Report 6029260-0 (Version None)
Quarter: 2009Q1

REPORT INFORMATION
  Report Type: 
  Country: None (occurrence: None)
  Receive Date: 20090106
  Receipt Date: 20081224
  Transmission Date: 20090719
  Serious: No
  Sender: FDA-Public Use
  Company Number: US-B.I. PHARMACEUTICALS,INC./RIDGEFIELD-2008-BP-19195BP

PATIENT
  Sex: Male

DRUGS (3)
  1. FLOMAX [Suspect]
     Indication: POLYURIA
     Dosage: .4MG
     Route: 048
     Dates: start: 20081101
  2. TOPROL-XL [Concomitant]
     Indication: HYPERTENSION
     Dosage: 20MG
     Route: 048
  3. TRICOR [Concomitant]

REACTIONS (1)
  - HEADACHE [None]
